FAERS Safety Report 7846907-4 (Version None)
Quarter: 2011Q4

REPORT INFORMATION
  Report Type: 
  Country: None (occurrence: None)
  Receive Date: 20111025
  Receipt Date: 20111020
  Transmission Date: 20120403
  Serious: Yes (Hospitalization)
  Sender: FDA-Public Use
  Company Number: JP-ABBOTT-11P-087-0716196-00

PATIENT
  Sex: Female
  Weight: 33 kg

DRUGS (14)
  1. HUMIRA [Suspect]
     Indication: RHEUMATOID ARTHRITIS
     Dates: start: 20081208, end: 20090104
  2. LEVODOPA/CARBIDOPA HYDRATE [Concomitant]
     Indication: PARKINSON'S DISEASE
     Route: 048
  3. METHOTREXATE [Concomitant]
     Indication: RHEUMATOID ARTHRITIS
     Route: 048
     Dates: start: 20080310, end: 20110228
  4. METHOTREXATE [Concomitant]
     Dates: start: 20110425
  5. CLONAZEPAM [Concomitant]
     Indication: PARKINSON'S DISEASE
     Route: 048
  6. DOMPERIDONE [Concomitant]
     Indication: PARKINSON'S DISEASE
     Route: 048
     Dates: start: 20060907
  7. FOLIC ACID [Concomitant]
     Indication: RHEUMATOID ARTHRITIS
     Route: 048
     Dates: start: 20080310, end: 20110228
  8. PRAMIPEXOLE HYDROCHLORIDE HYDRATE [Concomitant]
     Indication: PARKINSON'S DISEASE
     Route: 048
     Dates: start: 20101122
  9. CABERGOLINE [Concomitant]
     Indication: PARKINSON'S DISEASE
     Route: 048
  10. HUMIRA [Suspect]
     Dates: start: 20091117, end: 20110131
  11. HUMIRA [Suspect]
     Dates: start: 20090105, end: 20091116
  12. SELEGILINE HCL [Concomitant]
     Indication: PARKINSON'S DISEASE
     Route: 048
     Dates: start: 20060309
  13. ENTACAPONE [Concomitant]
     Indication: PARKINSON'S DISEASE
     Route: 048
     Dates: start: 20091005
  14. TRIHEXYPHENIDYL HCL [Concomitant]
     Indication: PARKINSON'S DISEASE
     Route: 048
     Dates: start: 20070817

REACTIONS (2)
  - ORGANISING PNEUMONIA [None]
  - HYPOCOMPLEMENTAEMIA [None]
